FAERS Safety Report 15108050 (Version 1)
Quarter: 2018Q3

REPORT INFORMATION
  Report Type: Spontaneous
  Country: US (occurrence: US)
  Receive Date: 20180704
  Receipt Date: 20180704
  Transmission Date: 20181010
  Serious: No
  Sender: FDA-Public Use
  Company Number: US-BIOGEN-2018BI00564626

PATIENT
  Sex: Female

DRUGS (1)
  1. TYSABRI [Suspect]
     Active Substance: NATALIZUMAB
     Indication: MULTIPLE SCLEROSIS
     Route: 065
     Dates: start: 20171207

REACTIONS (6)
  - Bronchitis [Recovered/Resolved]
  - Vaginal infection [Unknown]
  - Stomatitis [Not Recovered/Not Resolved]
  - Impaired healing [Unknown]
  - Fatigue [Recovered/Resolved]
  - Malaise [Unknown]
